FAERS Safety Report 9720822 (Version 1)
Quarter: 2013Q4

REPORT INFORMATION
  Report Type: Spontaneous
  Country: AT (occurrence: AT)
  Receive Date: 20131129
  Receipt Date: 20131129
  Transmission Date: 20140711
  Serious: No
  Sender: FDA-Public Use
  Company Number: AT-B.I. PHARMACEUTICALS,INC./RIDGEFIELD-2013-BI-38089BE

PATIENT
  Age: 59 Year
  Sex: Female
  Weight: 81 kg

DRUGS (2)
  1. JENTADUETO [Suspect]
     Indication: TYPE 2 DIABETES MELLITUS
     Dosage: STRENGTH: 2.5/1000 MG
     Dates: start: 20131022, end: 20131116
  2. SEVERAL COMEDICATIONS, NOT SPECIFIED [Concomitant]

REACTIONS (1)
  - Lymphadenopathy [Recovered/Resolved]
